FAERS Safety Report 8306398-6 (Version None)
Quarter: 2012Q2

REPORT INFORMATION
  Report Type: 
  Country: None (occurrence: None)
  Receive Date: 20120423
  Receipt Date: 20120411
  Transmission Date: 20120825
  Serious: Yes (Other)
  Sender: FDA-Public Use
  Company Number: CA-ELI_LILLY_AND_COMPANY-CA201204003514

PATIENT
  Age: 49 Year
  Sex: Female

DRUGS (8)
  1. ATIVAN [Concomitant]
     Dosage: UNK
  2. ACCUPRIL [Concomitant]
     Dosage: UNK
  3. GLUCOPHAGE [Concomitant]
     Dosage: UNK
  4. INSULIN N [Concomitant]
     Dosage: UNK
  5. LANTUS [Concomitant]
     Dosage: 13 U, QD
     Route: 058
  6. ASPIRIN [Concomitant]
     Dosage: UNK
  7. HUMULIN R [Suspect]
     Dosage: UNK, TID
  8. PANTOPRAZOLE SODIUM [Concomitant]
     Dosage: UNK

REACTIONS (7)
  - FATIGUE [None]
  - PAIN IN EXTREMITY [None]
  - MUSCULOSKELETAL CHEST PAIN [None]
  - SLEEP DISORDER DUE TO GENERAL MEDICAL CONDITION, INSOMNIA TYPE [None]
  - HEADACHE [None]
  - MYALGIA [None]
  - WEIGHT INCREASED [None]
